FAERS Safety Report 10068367 (Version 1)
Quarter: 2014Q2

REPORT INFORMATION
  Report Type: Spontaneous
  Country: US (occurrence: US)
  Receive Date: 20140409
  Receipt Date: 20140409
  Transmission Date: 20141212
  Serious: Yes (Hospitalization, Other)
  Sender: FDA-Public Use
  Company Number: US-PFIZER INC-2014099246

PATIENT
  Age: 37 Year
  Sex: Female
  Weight: 65.76 kg

DRUGS (5)
  1. ZOLOFT [Suspect]
     Indication: ANXIETY
     Dosage: 50 MG, UNK
     Dates: start: 1990
  2. ZOLOFT [Suspect]
     Indication: DEPRESSION
     Dosage: 100 MG, DAILY
  3. LYRICA [Concomitant]
     Indication: FIBROMYALGIA
     Dosage: UNK, 3X/DAY
  4. PERCOCET [Concomitant]
     Indication: PAIN
     Dosage: UNK, EVERY SIX HOURS
  5. METHOCARBAMOL [Concomitant]
     Indication: PAIN
     Dosage: 500 MG, 4X/DAY

REACTIONS (11)
  - Pneumonia [Unknown]
  - Weight decreased [Unknown]
  - Post-traumatic stress disorder [Unknown]
  - Fatigue [Unknown]
  - Loss of libido [Unknown]
  - Decreased appetite [Unknown]
  - Anxiety [Unknown]
  - Hyperhidrosis [Unknown]
  - Activities of daily living impaired [Unknown]
  - Insomnia [Unknown]
  - Feeling abnormal [Unknown]
